FAERS Safety Report 17964084 (Version 1)
Quarter: 2020Q2

REPORT INFORMATION
  Report Type: Spontaneous
  Country: CL (occurrence: CL)
  Receive Date: 20200630
  Receipt Date: 20200630
  Transmission Date: 20200714
  Serious: Yes (Hospitalization)
  Sender: FDA-Public Use
  Company Number: CL-BAYER-2020-082165

PATIENT
  Age: 39 Year
  Sex: Female

DRUGS (1)
  1. KYLEENA [Suspect]
     Active Substance: LEVONORGESTREL
     Dosage: 17.5 ?G PER DAY, CONTINUOUSLY
     Route: 015
     Dates: start: 20200220, end: 20200506

REACTIONS (8)
  - Device dislocation [Recovered/Resolved]
  - Hydrosalpinx [Recovered/Resolved]
  - Abdominal discomfort [Recovered/Resolved]
  - Menorrhagia [None]
  - Vaginal haemorrhage [None]
  - Migraine [None]
  - Pelvic pain [Not Recovered/Not Resolved]
  - Vulvovaginal mycotic infection [None]

NARRATIVE: CASE EVENT DATE: 20200229
